FAERS Safety Report 6576685-0 (Version None)
Quarter: 2010Q1

REPORT INFORMATION
  Report Type: 
  Country: None (occurrence: None)
  Receive Date: 20100210
  Receipt Date: 20100128
  Transmission Date: 20100710
  Serious: Yes (Hospitalization)
  Sender: FDA-Public Use
  Company Number: RU-ROCHE-536359

PATIENT
  Sex: Female
  Weight: 85 kg

DRUGS (13)
  1. TOCILIZUMAB [Suspect]
     Indication: RHEUMATOID ARTHRITIS
     Route: 042
     Dates: start: 20060516
  2. TOCILIZUMAB [Suspect]
     Dosage: LAST DOSE PRIOR TO SAE 11 JUL 2006,WEEK 4 VISIT
     Route: 042
     Dates: start: 20060613
  3. TOCILIZUMAB [Suspect]
     Dosage: REDUCED DOSE
     Route: 042
     Dates: start: 20061003
  4. TOCILIZUMAB [Suspect]
     Dosage: DOSE INCRESED
     Route: 042
     Dates: start: 20061227
  5. PLACEBO [Suspect]
     Indication: RHEUMATOID ARTHRITIS
     Dosage: DATE OF COMPLETION FOR WA 18063 WAS 16 MAY 2006
     Route: 042
     Dates: start: 20051115
  6. METHOTREXATE [Concomitant]
     Dates: start: 20031001
  7. MELOXICAM [Concomitant]
     Dates: start: 20041001
  8. FOLIC ACID [Concomitant]
     Dates: start: 20051025
  9. AMIODARONE HCL [Concomitant]
     Dates: start: 20040601, end: 20060725
  10. BETAXOLOL [Concomitant]
     Dates: start: 20040726
  11. ASPARCAM [Concomitant]
     Dates: start: 20040601, end: 20060725
  12. ASPIRIN [Concomitant]
     Dates: start: 20040601
  13. SPIRONOLACTONE [Concomitant]
     Dates: start: 20040601, end: 20060725

REACTIONS (1)
  - GASTRIC ULCER [None]
